FAERS Safety Report 9188808 (Version 1)
Quarter: 2013Q1

REPORT INFORMATION
  Report Type: Spontaneous
  Country: NZ (occurrence: NZ)
  Receive Date: 20130326
  Receipt Date: 20130326
  Transmission Date: 20140127
  Serious: Yes (Death, Hospitalization)
  Sender: FDA-Public Use
  Company Number: NZ-009507513-1303NZL010907

PATIENT
  Age: 90 Year
  Sex: Female

DRUGS (1)
  1. FOSAMAX [Suspect]
     Indication: OSTEITIS DEFORMANS
     Dosage: 40 MG, QD
     Route: 048
     Dates: start: 20121123

REACTIONS (1)
  - Oesophageal fistula [Fatal]
